FAERS Safety Report 12455914 (Version 3)
Quarter: 2016Q4

REPORT INFORMATION
  Report Type: Spontaneous
  Country: US (occurrence: US)
  Receive Date: 20160610
  Receipt Date: 20161017
  Transmission Date: 20170207
  Serious: Yes (Hospitalization)
  Sender: FDA-Public Use
  Company Number: US-BAYER-2016-113743

PATIENT
  Age: 30 Year
  Sex: Female
  Weight: 134.69 kg

DRUGS (1)
  1. MIRENA [Suspect]
     Active Substance: LEVONORGESTREL
     Indication: CONTRACEPTION
     Dosage: 20 MCG/24HR, CONT
     Route: 015
     Dates: start: 20120913, end: 20140522

REACTIONS (5)
  - Pain [Not Recovered/Not Resolved]
  - Device issue [None]
  - Uterine perforation [Not Recovered/Not Resolved]
  - Dyspareunia [None]
  - Fear [None]

NARRATIVE: CASE EVENT DATE: 201212
